FAERS Safety Report 21062140 (Version 2)
Quarter: 2024Q2

REPORT INFORMATION
  Report Type: Report from Study
  Country: BG (occurrence: BG)
  Receive Date: 20220711
  Receipt Date: 20240514
  Transmission Date: 20240716
  Serious: Yes (Hospitalization, Other)
  Sender: FDA-Public Use
  Company Number: BG-BAYER-2022A090962

PATIENT
  Age: 66 Year
  Sex: Female
  Weight: 75 kg

DRUGS (2)
  1. RIVAROXABAN [Suspect]
     Active Substance: RIVAROXABAN
     Indication: Atrial flutter
     Dosage: 20 MG, QD
     Route: 048
     Dates: start: 20220304, end: 20220622
  2. FINERENONE [Suspect]
     Active Substance: FINERENONE
     Indication: Left ventricular failure
     Dosage: 10
     Route: 048
     Dates: start: 20210514

REACTIONS (2)
  - Iron deficiency anaemia [Recovered/Resolved]
  - Gastritis erosive [Recovered/Resolved]

NARRATIVE: CASE EVENT DATE: 20220621
